FAERS Safety Report 5046347-X (Version None)
Quarter: 2006Q2

REPORT INFORMATION
  Report Type: 
  Country: None (occurrence: None)
  Receive Date: 20060629
  Receipt Date: 20060623
  Transmission Date: 20061013
  Serious: Yes (Other)
  Sender: FDA-Public Use
  Company Number: A-US2006-11853

PATIENT
  Age: 36 Year
  Sex: Male

DRUGS (11)
  1. TRACLEER [Suspect]
     Indication: PULMONARY HYPERTENSION
     Dosage: SEE IMAGE
     Route: 048
     Dates: start: 20041221, end: 20051001
  2. COUMADIN [Concomitant]
  3. ACYCLOVIR [Concomitant]
  4. LEXAPRO [Concomitant]
  5. VIAGRA [Concomitant]
  6. LISINOPRIL [Concomitant]
  7. LASIX [Concomitant]
  8. ALDACTONE [Concomitant]
  9. TRAVUDA [Concomitant]
  10. RITONAVIR (RITONAVIR) [Concomitant]
  11. ATARAX [Concomitant]

REACTIONS (6)
  - ALANINE AMINOTRANSFERASE INCREASED [None]
  - ASPARTATE AMINOTRANSFERASE INCREASED [None]
  - BLOOD BILIRUBIN INCREASED [None]
  - COUGH [None]
  - MALAISE [None]
  - NAUSEA [None]
